FAERS Safety Report 8321471-4 (Version None)
Quarter: 2012Q2

REPORT INFORMATION
  Report Type: 
  Country: None (occurrence: None)
  Receive Date: 20120430
  Receipt Date: 20120430
  Transmission Date: 20120825
  Serious: Yes (Other)
  Sender: FDA-Public Use
  Company Number: None

PATIENT
  Sex: Male
  Weight: 79.378 kg

DRUGS (1)
  1. ENBREL [Suspect]
     Indication: PSORIASIS
     Dosage: 50.0 MG
     Route: 058
     Dates: start: 20110608, end: 20120428

REACTIONS (3)
  - BLISTER [None]
  - ERYTHEMA [None]
  - ALOPECIA [None]
